FAERS Safety Report 6963751-0 (Version None)
Quarter: 2010Q3

REPORT INFORMATION
  Report Type: 
  Country: None (occurrence: None)
  Receive Date: 20100902
  Receipt Date: 20100825
  Transmission Date: 20110219
  Serious: Yes (Death, Hospitalization)
  Sender: FDA-Public Use
  Company Number: US-PFIZER INC-2010107474

PATIENT
  Sex: Female
  Weight: 68.027 kg

DRUGS (7)
  1. REVATIO [Suspect]
     Indication: PULMONARY HYPERTENSION
     Dosage: UNK MG, 2X/DAY
     Route: 048
     Dates: end: 20100813
  2. FEXOFENADINE [Concomitant]
     Dosage: UNK
  3. HYDRALAZINE [Concomitant]
     Dosage: UNK
  4. ACETYLSALICYLIC ACID [Concomitant]
     Indication: CARDIAC DISORDER
     Dosage: 81 MG, 1X/DAY
  5. WARFARIN SODIUM [Concomitant]
     Dosage: UNK
     Route: 048
  6. VITAMINS [Concomitant]
     Dosage: UNK
  7. CALCIUM [Concomitant]
     Dosage: UNK

REACTIONS (2)
  - DEATH [None]
  - PULMONARY OEDEMA [None]
